FAERS Safety Report 16569058 (Version 2)
Quarter: 2019Q3

REPORT INFORMATION
  Report Type: Spontaneous
  Country: HU (occurrence: HU)
  Receive Date: 20190713
  Receipt Date: 20190801
  Transmission Date: 20191004
  Serious: Yes (Life-Threatening, Hospitalization)
  Sender: FDA-Public Use
  Company Number: PHHY2019HU159261

PATIENT
  Age: 66 Year
  Sex: Female

DRUGS (8)
  1. CLARITHROMYCIN. [Suspect]
     Active Substance: CLARITHROMYCIN
     Indication: PRODUCT USED FOR UNKNOWN INDICATION
     Dosage: 500 MG
     Route: 048
     Dates: start: 20181120, end: 20181123
  2. METHYLPREDNISOLONE. [Suspect]
     Active Substance: METHYLPREDNISOLONE
     Indication: RASH
     Dosage: 125 MG, UNK
     Route: 051
  3. MOXIFLOXACIN. [Suspect]
     Active Substance: MOXIFLOXACIN
     Indication: PRODUCT USED FOR UNKNOWN INDICATION
     Dosage: 400 MG, QD
     Route: 042
     Dates: start: 20181123, end: 20181127
  4. METHYLPREDNISOLONE. [Suspect]
     Active Substance: METHYLPREDNISOLONE
     Dosage: 20 MG, QD (FOR 3 DAYS)
     Route: 048
     Dates: start: 20181114
  5. METHYLPREDNISOLONE. [Suspect]
     Active Substance: METHYLPREDNISOLONE
     Dosage: 80 MG, (FOR 2 DAYS)
     Route: 048
  6. ASA [Suspect]
     Active Substance: ASPIRIN
     Indication: PRODUCT USED FOR UNKNOWN INDICATION
     Dosage: 100 MG, QD ( 4 TIMES IN TOTAL)
     Route: 048
     Dates: start: 20181109, end: 20181119
  7. METHYLPREDNISOLONE. [Suspect]
     Active Substance: METHYLPREDNISOLONE
     Dosage: 60 MG, QD (FOR 3 DAYS)
     Route: 048
  8. PENTAGLOBIN [Suspect]
     Active Substance: HUMAN IMMUNOGLOBULIN G
     Indication: PRODUCT USED FOR UNKNOWN INDICATION
     Dosage: 0.5 G/KG, UNK
     Route: 042
     Dates: start: 20181204, end: 20181207

REACTIONS (20)
  - Lymphadenopathy [Unknown]
  - Escherichia infection [Unknown]
  - Rash [Unknown]
  - Streptococcal infection [Unknown]
  - Oropharyngeal plaque [Unknown]
  - Hiatus hernia [Unknown]
  - Purpura [Unknown]
  - Thrombocytosis [Unknown]
  - Necrosis [Unknown]
  - Blood lactate dehydrogenase increased [Unknown]
  - Staphylococcal infection [Unknown]
  - Oedema peripheral [Unknown]
  - Blood immunoglobulin A increased [Unknown]
  - Vasculitis necrotising [Recovered/Resolved with Sequelae]
  - Disseminated intravascular coagulation [Unknown]
  - Renal function test abnormal [Unknown]
  - Beta 2 microglobulin increased [Unknown]
  - Blood blister [Unknown]
  - Cholelithiasis [Unknown]
  - Blood creatine phosphokinase increased [Unknown]

NARRATIVE: CASE EVENT DATE: 201811
